FAERS Safety Report 8144936 (Version 36)
Quarter: 2013Q3

REPORT INFORMATION
  Report Type: Report from Study
  Country: CA (occurrence: CA)
  Receive Date: 20110920
  Receipt Date: 20130905
  Transmission Date: 20140515
  Serious: Yes (Death, Hospitalization, Other)
  Sender: FDA-Public Use
  Company Number: PHHY2011CA68508

PATIENT
  Age: 65 Year
  Sex: Female
  Weight: 55 kg

DRUGS (15)
  1. SANDOSTATIN LAR [Suspect]
     Indication: CARCINOID TUMOUR
     Dosage: 30 MG EVERY 2 WEEKS
     Route: 030
     Dates: start: 20031001
  2. SANDOSTATIN LAR [Suspect]
     Dosage: 30 MG EVERY 4 WEEKS
     Route: 030
  3. SANDOSTATIN LAR [Suspect]
     Dosage: 30 MG EVERY 2 WEEKS
     Route: 030
  4. SANDOSTATIN LAR [Suspect]
     Dosage: 200 UG, TID
     Route: 058
     Dates: start: 201212
  5. SANDOSTATIN LAR [Suspect]
     Dosage: 60 MG, EVERY 2 WEEKS
     Route: 030
     Dates: end: 20130816
  6. SANDOSTATIN [Suspect]
     Dosage: 20 UG, TID
     Route: 058
     Dates: start: 201212
  7. PANTOPRAZOLE [Concomitant]
     Dosage: 4 MG, DAILY
  8. IRBESARTAN [Concomitant]
     Dosage: 225 MG, QOD
  9. TEMOZOLOMIDE [Concomitant]
     Dosage: UNK UKN, UNK
     Dates: end: 20121115
  10. RADIATION THERAPY [Concomitant]
  11. CAPECITABINE [Concomitant]
     Dates: start: 20121106
  12. FLUID/ELECTROLYTE REPLACEMENT THERAPY [Concomitant]
  13. BOOST [Concomitant]
     Dosage: 6 BOTTLES/ 24 HOURS
  14. BOOST [Concomitant]
     Dosage: UNK UKN, UNK
  15. BOOST [Concomitant]
     Dosage: 3 DF, (3 BOTTLES PER DAY)

REACTIONS (32)
  - Death [Fatal]
  - Pain [Unknown]
  - Single functional kidney [Unknown]
  - Gastrointestinal stoma complication [Unknown]
  - Pollakiuria [Unknown]
  - Abscess rupture [Unknown]
  - Deep vein thrombosis [Unknown]
  - Fistula [Unknown]
  - Hypertension [Unknown]
  - Intestinal obstruction [Unknown]
  - Diarrhoea [Not Recovered/Not Resolved]
  - Dehydration [Unknown]
  - Electrolyte imbalance [Unknown]
  - Painful defaecation [Unknown]
  - Pain in extremity [Unknown]
  - Arthralgia [Unknown]
  - Joint swelling [Unknown]
  - Haemoglobin decreased [Unknown]
  - Weight decreased [Not Recovered/Not Resolved]
  - Oedema peripheral [Unknown]
  - Erythema [Unknown]
  - Blood creatinine increased [Unknown]
  - Hypophagia [Unknown]
  - Communication disorder [Unknown]
  - Somnolence [Unknown]
  - Faeces hard [Recovered/Resolved]
  - Malaise [Unknown]
  - Decreased appetite [Unknown]
  - Flatulence [Unknown]
  - Dizziness [Unknown]
  - Abdominal pain [Unknown]
  - Asthenia [Unknown]
